FAERS Safety Report 25434281 (Version 1)
Quarter: 2025Q2

REPORT INFORMATION
  Report Type: Spontaneous
  Country: JP (occurrence: JP)
  Receive Date: 20250613
  Receipt Date: 20250613
  Transmission Date: 20250716
  Serious: Yes (Other)
  Sender: EISAI
  Company Number: JP-Eisai-202503033_LEN-EC_P_1

PATIENT
  Age: 55 Year
  Sex: Female

DRUGS (4)
  1. LENVIMA [Suspect]
     Active Substance: LENVATINIB
     Indication: Endometrial cancer recurrent
     Route: 048
     Dates: start: 202501, end: 202501
  2. LENVIMA [Suspect]
     Active Substance: LENVATINIB
     Dosage: 2 COURSES
     Route: 048
     Dates: start: 2025, end: 202502
  3. LENVIMA [Suspect]
     Active Substance: LENVATINIB
     Dates: start: 202503, end: 20250307
  4. KEYTRUDA [Concomitant]
     Active Substance: PEMBROLIZUMAB
     Indication: Endometrial cancer recurrent
     Dates: start: 202501

REACTIONS (1)
  - Platelet count decreased [Recovered/Resolved]

NARRATIVE: CASE EVENT DATE: 20250101
